FAERS Safety Report 13380658 (Version 2)
Quarter: 2019Q4

REPORT INFORMATION
  Report Type: Spontaneous
  Country: US (occurrence: US)
  Receive Date: 20170329
  Receipt Date: 20191022
  Transmission Date: 20200122
  Serious: No
  Sender: FDA-Public Use
  Company Number: US-TEVA-601846USA

PATIENT
  Sex: Female

DRUGS (1)
  1. ADENOVIRUS VACCINE [Suspect]
     Active Substance: ADENOVIRUS VACCINE
     Route: 048
     Dates: start: 2015

REACTIONS (2)
  - Exposure during pregnancy [Unknown]
  - Abortion induced [Unknown]

NARRATIVE: CASE EVENT DATE: 2015
